FAERS Safety Report 5307969-1 (Version None)
Quarter: 2007Q2

REPORT INFORMATION
  Report Type: 
  Country: None (occurrence: None)
  Receive Date: 20070426
  Receipt Date: 20070413
  Transmission Date: 20071010
  Serious: Yes (Hospitalization)
  Sender: FDA-Public Use
  Company Number: 2007AP01859

PATIENT
  Age: 64 Year
  Sex: Male
  Weight: 59.1 kg

DRUGS (2)
  1. CRESTOR [Suspect]
     Route: 048
     Dates: start: 20061101, end: 20070301
  2. PLAVIX [Concomitant]
     Route: 048
     Dates: end: 20070301

REACTIONS (6)
  - ARTHRALGIA [None]
  - ATRIAL FIBRILLATION [None]
  - BLOOD CREATINE PHOSPHOKINASE INCREASED [None]
  - FEELING HOT [None]
  - NECK PAIN [None]
  - TRANSIENT ISCHAEMIC ATTACK [None]
